FAERS Safety Report 22639872 (Version 1)
Quarter: 2023Q2

REPORT INFORMATION
  Report Type: Report from Study
  Country: US (occurrence: US)
  Receive Date: 20230626
  Receipt Date: 20230626
  Transmission Date: 20230721
  Serious: Yes (Hospitalization)
  Sender: FDA-Public Use
  Company Number: US-PFIZER INC-US-GBT-021838

PATIENT
  Age: 73 Year
  Sex: Male

DRUGS (2)
  1. OXBRYTA [Suspect]
     Active Substance: VOXELOTOR
     Dosage: 1500 MG
     Route: 048
  2. OXBRYTA [Suspect]
     Active Substance: VOXELOTOR
     Dosage: 1500 MG, 1X/DAY
     Route: 048

REACTIONS (3)
  - Liver operation [Recovering/Resolving]
  - Cough [Unknown]
  - Product dose omission issue [Unknown]
